FAERS Safety Report 25539838 (Version 1)
Quarter: 2025Q3

REPORT INFORMATION
  Report Type: Spontaneous
  Country: US (occurrence: None)
  Receive Date: 20250710
  Receipt Date: 20250710
  Transmission Date: 20251021
  Serious: Yes (Life-Threatening, Hospitalization, Disabling)
  Sender: FDA-CTU
  Company Number: None

PATIENT
  Age: 44 Year
  Sex: Female
  Weight: 58.5 kg

DRUGS (5)
  1. SEMAGLUTIDE [Suspect]
     Active Substance: SEMAGLUTIDE
     Indication: Weight control
     Dates: start: 20240331, end: 20241114
  2. METOPROLOL [Concomitant]
     Active Substance: METOPROLOL
  3. THYROID [Concomitant]
     Active Substance: LEVOTHYROXINE\LIOTHYRONINE
  4. QULIPTA [Concomitant]
     Active Substance: ATOGEPANT
  5. VITAMINS [Concomitant]
     Active Substance: VITAMINS

REACTIONS (4)
  - Circulatory collapse [None]
  - Seizure [None]
  - Cardiac arrest [None]
  - Drug monitoring procedure not performed [None]

NARRATIVE: CASE EVENT DATE: 20241116
